FAERS Safety Report 6911401-1 (Version None)
Quarter: 2010Q3

REPORT INFORMATION
  Report Type: 
  Country: None (occurrence: None)
  Receive Date: 20100806
  Receipt Date: 20100727
  Transmission Date: 20110219
  Serious: Yes (Hospitalization, Other)
  Sender: FDA-Public Use
  Company Number: JP-PFIZER INC-2010088036

PATIENT
  Age: 56 Year
  Sex: Female

DRUGS (8)
  1. GABAPEN [Suspect]
     Dosage: UNK
     Route: 048
  2. CELECOX [Suspect]
     Dosage: UNK
     Route: 048
     Dates: end: 20100714
  3. LIPITOR [Suspect]
     Dosage: 5 MG, UNK
     Route: 048
  4. TAKEPRON [Suspect]
     Dosage: UNK
     Route: 048
     Dates: end: 20100714
  5. LIPLE [Suspect]
     Dosage: UNK
  6. URSO 250 [Suspect]
     Dosage: UNK
     Route: 048
     Dates: end: 20100714
  7. NU LOTAN [Concomitant]
     Dosage: UNK
     Route: 048
  8. DIAZEPAM [Concomitant]
     Dosage: UNK
     Route: 048

REACTIONS (2)
  - PLATELET COUNT DECREASED [None]
  - SYSTEMIC LUPUS ERYTHEMATOSUS [None]
